FAERS Safety Report 18502208 (Version 3)
Quarter: 2023Q1

REPORT INFORMATION
  Report Type: Report from Study
  Country: SK (occurrence: None)
  Receive Date: 20201113
  Receipt Date: 20230102
  Transmission Date: 20230417
  Serious: Yes (Hospitalization)
  Sender: FDA-Public Use
  Company Number: SK-ROCHE-1252661

PATIENT
  Age: 37 Year
  Sex: Male
  Weight: 70 kg

DRUGS (145)
  1. PLACEBO [Suspect]
     Active Substance: UNSPECIFIED INGREDIENT
     Indication: Relapsing-remitting multiple sclerosis
     Route: 042
     Dates: start: 20111206, end: 20111206
  2. PLACEBO [Suspect]
     Active Substance: UNSPECIFIED INGREDIENT
     Route: 042
     Dates: start: 20111219, end: 20111219
  3. PLACEBO [Suspect]
     Active Substance: UNSPECIFIED INGREDIENT
     Route: 042
     Dates: start: 20120521, end: 20120521
  4. PLACEBO [Suspect]
     Active Substance: UNSPECIFIED INGREDIENT
     Route: 042
     Dates: start: 20121105, end: 20121105
  5. PLACEBO [Suspect]
     Active Substance: UNSPECIFIED INGREDIENT
     Route: 042
     Dates: start: 20130422, end: 20130422
  6. INTERFERON BETA-1A [Suspect]
     Active Substance: INTERFERON BETA-1A
     Indication: Relapsing-remitting multiple sclerosis
     Dosage: FOR WEEK 1 AND 2
     Route: 058
     Dates: start: 20111206
  7. INTERFERON BETA-1A [Suspect]
     Active Substance: INTERFERON BETA-1A
     Dosage: DURING WEEKS 3 AND 4: 22 MICROGRAM INJECTION 3 TIMES PER WEEK;?FROM THE 5TH WEEK: 44 MICROGRAM INJEC
     Route: 058
     Dates: end: 20130810
  8. OCRELIZUMAB [Suspect]
     Active Substance: OCRELIZUMAB
     Indication: Relapsing-remitting multiple sclerosis
     Dosage: OLE-WEEK 0
     Route: 042
     Dates: start: 20131104, end: 20131104
  9. OCRELIZUMAB [Suspect]
     Active Substance: OCRELIZUMAB
     Dosage: OLE-WEEK 2
     Route: 042
     Dates: start: 20131118, end: 20131118
  10. OCRELIZUMAB [Suspect]
     Active Substance: OCRELIZUMAB
     Dosage: OLE-WEEK 24
     Route: 042
     Dates: start: 20140423, end: 20140423
  11. OCRELIZUMAB [Suspect]
     Active Substance: OCRELIZUMAB
     Dosage: OLE-WEEK 48
     Route: 042
     Dates: start: 20141006, end: 20141006
  12. OCRELIZUMAB [Suspect]
     Active Substance: OCRELIZUMAB
     Dosage: OLE-WEEK 72
     Route: 042
     Dates: start: 20150323, end: 20150323
  13. OCRELIZUMAB [Suspect]
     Active Substance: OCRELIZUMAB
     Dosage: OLE-WEEK 96
     Route: 042
     Dates: start: 20150902, end: 20150902
  14. OCRELIZUMAB [Suspect]
     Active Substance: OCRELIZUMAB
     Dosage: OLE-WEEK 120
     Route: 042
     Dates: start: 20160304, end: 20160304
  15. OCRELIZUMAB [Suspect]
     Active Substance: OCRELIZUMAB
     Dosage: OLE-WEEK 144
     Route: 042
     Dates: start: 20160810, end: 20160810
  16. OCRELIZUMAB [Suspect]
     Active Substance: OCRELIZUMAB
     Dosage: OLE-WEEK 168
     Route: 042
     Dates: start: 20170125, end: 20170125
  17. OCRELIZUMAB [Suspect]
     Active Substance: OCRELIZUMAB
     Dosage: OLE-WEEK 192
     Route: 042
     Dates: start: 20170714, end: 20170714
  18. OCRELIZUMAB [Suspect]
     Active Substance: OCRELIZUMAB
     Dosage: OLE-WEEK 216
     Route: 042
     Dates: start: 20171222, end: 20171222
  19. OCRELIZUMAB [Suspect]
     Active Substance: OCRELIZUMAB
     Dosage: OLE-WEEK 240
     Route: 042
     Dates: start: 20180611, end: 20180611
  20. OCRELIZUMAB [Suspect]
     Active Substance: OCRELIZUMAB
     Dosage: OLE-WEEK 264
     Route: 042
     Dates: start: 20181126, end: 20181126
  21. OCRELIZUMAB [Suspect]
     Active Substance: OCRELIZUMAB
     Dosage: OLE-WEEK 288
     Route: 042
     Dates: start: 20190510, end: 20190510
  22. OCRELIZUMAB [Suspect]
     Active Substance: OCRELIZUMAB
     Dosage: WEEK 312
     Route: 042
     Dates: start: 20191030, end: 20191030
  23. OCRELIZUMAB [Suspect]
     Active Substance: OCRELIZUMAB
     Dosage: OLE-WEEK 336
     Route: 042
     Dates: start: 20200408, end: 20200408
  24. OCRELIZUMAB [Suspect]
     Active Substance: OCRELIZUMAB
     Dosage: OLE-WEEK 360
     Route: 042
     Dates: start: 20201002, end: 20201002
  25. RIVOTRIL [Concomitant]
     Active Substance: CLONAZEPAM
     Route: 048
     Dates: start: 2007
  26. RIVOTRIL [Concomitant]
     Active Substance: CLONAZEPAM
     Route: 048
     Dates: start: 2009
  27. RIVOTRIL [Concomitant]
     Active Substance: CLONAZEPAM
     Dates: start: 20190629
  28. BISULEPIN [Concomitant]
     Active Substance: BISULEPIN
     Dosage: PRE-MEDICATION.
     Dates: start: 20111206
  29. BISULEPIN [Concomitant]
     Active Substance: BISULEPIN
     Dosage: PRE-MEDICATION.
     Dates: start: 20111219
  30. BISULEPIN [Concomitant]
     Active Substance: BISULEPIN
     Dosage: PRE-MEDICATION. WEEK 24
     Dates: start: 20120521
  31. BISULEPIN [Concomitant]
     Active Substance: BISULEPIN
     Dosage: PRE-MEDICATION.
     Dates: start: 20121105
  32. BISULEPIN [Concomitant]
     Active Substance: BISULEPIN
     Dosage: PRE-MEDICATION.
     Dates: start: 20130422
  33. ACETAMINOPHEN [Concomitant]
     Active Substance: ACETAMINOPHEN
     Indication: COVID-19 pneumonia
     Dosage: PRE-MEDICATION. BASELINE (WEEK 1)
     Dates: start: 20111206
  34. ACETAMINOPHEN [Concomitant]
     Active Substance: ACETAMINOPHEN
     Dosage: PRE-MEDICATION. WEEK 2
     Dates: start: 20111219
  35. ACETAMINOPHEN [Concomitant]
     Active Substance: ACETAMINOPHEN
     Dosage: PRE-MEDICATION. WEEK 24
     Dates: start: 20120521
  36. ACETAMINOPHEN [Concomitant]
     Active Substance: ACETAMINOPHEN
     Dosage: PRE-MEDICATION.
     Dates: start: 20121105
  37. ACETAMINOPHEN [Concomitant]
     Active Substance: ACETAMINOPHEN
     Dosage: PRE-MEDICATION.
     Dates: start: 20130422
  38. ACETAMINOPHEN [Concomitant]
     Active Substance: ACETAMINOPHEN
     Dates: start: 20111208, end: 20111208
  39. ACETAMINOPHEN [Concomitant]
     Active Substance: ACETAMINOPHEN
     Dosage: OLE-WEEK 216
     Dates: start: 20171222
  40. ACETAMINOPHEN [Concomitant]
     Active Substance: ACETAMINOPHEN
     Dosage: OLE-WEEK 240
     Dates: start: 20180611
  41. ACETAMINOPHEN [Concomitant]
     Active Substance: ACETAMINOPHEN
     Dosage: OLE WEEK 336-08/APR/2020
     Dates: start: 20170111, end: 20170403
  42. ACETAMINOPHEN [Concomitant]
     Active Substance: ACETAMINOPHEN
     Dates: start: 20220301, end: 20220620
  43. METHYLPREDNISOLONE [Concomitant]
     Active Substance: METHYLPREDNISOLONE
     Dosage: PRE-MEDICATION. BASELINE (WEEK 1)
     Dates: start: 20111206, end: 20111206
  44. METHYLPREDNISOLONE [Concomitant]
     Active Substance: METHYLPREDNISOLONE
     Dosage: PRE-MEDICATION.
     Dates: start: 20111219, end: 20111219
  45. METHYLPREDNISOLONE [Concomitant]
     Active Substance: METHYLPREDNISOLONE
     Dosage: PRE-MEDICATION.
     Dates: start: 20120521, end: 20120521
  46. METHYLPREDNISOLONE [Concomitant]
     Active Substance: METHYLPREDNISOLONE
     Dosage: PRE-MEDICATION.
     Dates: start: 20121105, end: 20121105
  47. METHYLPREDNISOLONE [Concomitant]
     Active Substance: METHYLPREDNISOLONE
     Dosage: PRE-MEDICATION.
     Dates: start: 20130422, end: 20130422
  48. METHYLPREDNISOLONE [Concomitant]
     Active Substance: METHYLPREDNISOLONE
     Dosage: SOLUMEDROL
     Dates: start: 20110204, end: 20110208
  49. METHYLPREDNISOLONE [Concomitant]
     Active Substance: METHYLPREDNISOLONE
     Dosage: SOLUMEDROL
     Dates: start: 20110613, end: 20110617
  50. METHYLPREDNISOLONE [Concomitant]
     Active Substance: METHYLPREDNISOLONE
     Dosage: SOLUMEDROL
     Dates: start: 20111003, end: 20111007
  51. METHYLPREDNISOLONE [Concomitant]
     Active Substance: METHYLPREDNISOLONE
     Dosage: SOLUMEDROL
     Dates: start: 20120717, end: 20120723
  52. METHYLPREDNISOLONE [Concomitant]
     Active Substance: METHYLPREDNISOLONE
     Dates: start: 20130423, end: 20130427
  53. METHYLPREDNISOLONE [Concomitant]
     Active Substance: METHYLPREDNISOLONE
     Dosage: OLE-WEEK 0 SUBSEQUENT DOSE ON 18/NOV/2013 OLE-WEEK 2, 23/APR/2014 OLE-WEEK 24, 06/OCT/2014 OLE-WEEK
     Dates: start: 20131104, end: 20131104
  54. PREDNISONE [Concomitant]
     Active Substance: PREDNISONE
     Indication: COVID-19 pneumonia
     Dates: start: 20110209, end: 20110210
  55. PREDNISONE [Concomitant]
     Active Substance: PREDNISONE
     Dates: start: 20110211, end: 20110213
  56. PREDNISONE [Concomitant]
     Active Substance: PREDNISONE
     Dates: start: 20110214, end: 20110215
  57. PREDNISONE [Concomitant]
     Active Substance: PREDNISONE
     Dates: start: 20110216, end: 20110217
  58. PREDNISONE [Concomitant]
     Active Substance: PREDNISONE
     Dates: start: 20110218, end: 20110219
  59. PREDNISONE [Concomitant]
     Active Substance: PREDNISONE
     Dates: start: 20110220, end: 20110221
  60. PREDNISONE [Concomitant]
     Active Substance: PREDNISONE
     Dates: start: 20110618, end: 20110618
  61. PREDNISONE [Concomitant]
     Active Substance: PREDNISONE
     Dates: start: 20110619, end: 20110619
  62. PREDNISONE [Concomitant]
     Active Substance: PREDNISONE
     Dates: start: 20110620, end: 20110620
  63. PREDNISONE [Concomitant]
     Active Substance: PREDNISONE
     Dates: start: 20110621, end: 20110621
  64. PREDNISONE [Concomitant]
     Active Substance: PREDNISONE
     Dates: start: 20110622, end: 20110623
  65. PREDNISONE [Concomitant]
     Active Substance: PREDNISONE
     Dates: start: 20110624, end: 20110625
  66. PREDNISONE [Concomitant]
     Active Substance: PREDNISONE
     Dates: start: 20110626, end: 20110627
  67. PREDNISONE [Concomitant]
     Active Substance: PREDNISONE
     Dates: start: 20111008, end: 20111008
  68. PREDNISONE [Concomitant]
     Active Substance: PREDNISONE
     Dates: start: 20111009, end: 20111009
  69. PREDNISONE [Concomitant]
     Active Substance: PREDNISONE
     Dates: start: 20111010, end: 20111010
  70. PREDNISONE [Concomitant]
     Active Substance: PREDNISONE
     Dates: start: 20111011, end: 20111011
  71. PREDNISONE [Concomitant]
     Active Substance: PREDNISONE
     Dates: start: 20111012, end: 20111012
  72. PREDNISONE [Concomitant]
     Active Substance: PREDNISONE
     Dates: start: 20111013, end: 20111013
  73. PREDNISONE [Concomitant]
     Active Substance: PREDNISONE
     Dates: start: 20111014, end: 20111014
  74. PREDNISONE [Concomitant]
     Active Substance: PREDNISONE
     Dates: start: 20220514, end: 20220620
  75. ACYCLOVIR [Concomitant]
     Active Substance: ACYCLOVIR
     Dates: start: 20110216, end: 20110315
  76. FAMOTIDINE [Concomitant]
     Active Substance: FAMOTIDINE
     Dates: start: 20120717, end: 20120723
  77. FAMOTIDINE [Concomitant]
     Active Substance: FAMOTIDINE
     Dates: start: 20190625, end: 20190629
  78. FAMOTIDINE [Concomitant]
     Active Substance: FAMOTIDINE
     Dates: start: 20140127, end: 20140131
  79. FAMOTIDINE [Concomitant]
     Active Substance: FAMOTIDINE
     Dates: start: 20170327, end: 20170402
  80. FAMOTIDINE [Concomitant]
     Active Substance: FAMOTIDINE
     Dates: start: 20180831, end: 20180904
  81. ACECLOFENAC [Concomitant]
     Active Substance: ACECLOFENAC
     Indication: Intervertebral disc protrusion
     Dates: start: 20121212
  82. ACECLOFENAC [Concomitant]
     Active Substance: ACECLOFENAC
     Dates: start: 20150610, end: 20150625
  83. ACECLOFENAC [Concomitant]
     Active Substance: ACECLOFENAC
     Dates: start: 20121212, end: 20130813
  84. BETAMETHASONE DIPROPIONATE\GENTAMICIN SULFATE [Concomitant]
     Active Substance: BETAMETHASONE DIPROPIONATE\GENTAMICIN SULFATE
     Dates: start: 20120521, end: 20180528
  85. BISULEPIN [Concomitant]
     Active Substance: BISULEPIN
     Dosage: WEEK 48 NEXT SUBSEQUENT DOSE ON 23/APR/2013 WEEK 72, 04/NOV/2013 OLE-WEEK 0, 18/NOV/2013 OLE-WEEK 2,
     Dates: start: 20121105
  86. PARALEN (SLOVAKIA) [Concomitant]
     Dosage: WEEK 48 SUBSEQUENT DOSE ON 22/APR/2013 WEEK 72, 04/NOV/2013 OLE-WEEK 0, 18/NOV/2013 OLE-WEEK 2, 23/A
     Dates: start: 20121105
  87. PARALEN (SLOVAKIA) [Concomitant]
     Dates: start: 20111208, end: 20131104
  88. CALCIUM GLUCONICUM [Concomitant]
     Dosage: 1 AMPULES
     Dates: start: 20141119, end: 20141127
  89. CALCIUM GLUCONICUM [Concomitant]
     Dosage: 1 AMPULE
     Dates: start: 20150604, end: 20150609
  90. CALCIUM GLUCONICUM [Concomitant]
     Dosage: 1 AMPULE
     Dates: start: 20170322, end: 20170325
  91. MESOCAIN [Concomitant]
     Indication: Intervertebral disc protrusion
     Dosage: 2 AMPULE
     Dates: start: 20141119, end: 20141127
  92. MESOCAIN [Concomitant]
     Dosage: 2 AMPULE
     Dates: start: 20150604, end: 20150609
  93. MESOCAIN [Concomitant]
     Dosage: 2 AMPULE
     Dates: start: 20170322, end: 20170326
  94. MESOCAIN [Concomitant]
     Dates: start: 20150511, end: 20150511
  95. MESOCAIN [Concomitant]
     Dosage: 2 AMPULE
     Dates: start: 20151130, end: 20151207
  96. GUAIFENESIN [Concomitant]
     Active Substance: GUAIFENESIN
     Dosage: 1 AMPULE?19/NOV/2014-27/NOV/2014?22/MAR/2017-26/MAR/2017, 30/NOV/2015-07/DEC/2015
     Dates: start: 20150604, end: 20150609
  97. AESCIN [Concomitant]
     Indication: Intervertebral disc protrusion
     Dates: start: 20141119, end: 20141127
  98. AESCIN [Concomitant]
     Dates: start: 20150604, end: 20150609
  99. DIPROPHOS [Concomitant]
     Active Substance: BETAMETHASONE DIPROPIONATE\BETAMETHASONE SODIUM PHOSPHATE
     Dates: start: 20150511, end: 20150511
  100. KETONAL (SLOVAKIA) [Concomitant]
     Indication: Intervertebral disc protrusion
     Dates: start: 20150511, end: 20180528
  101. BUPIVACAINE HYDROCHLORIDE [Concomitant]
     Active Substance: BUPIVACAINE HYDROCHLORIDE
     Indication: Intervertebral disc protrusion
     Dates: start: 20150511, end: 20150511
  102. DICLOFENAC SODIUM [Concomitant]
     Active Substance: DICLOFENAC SODIUM
     Indication: Intervertebral disc protrusion
     Dates: start: 20150604, end: 20150609
  103. DICLOFENAC SODIUM [Concomitant]
     Active Substance: DICLOFENAC SODIUM
     Dates: start: 20140912, end: 20140912
  104. DICLOFENAC SODIUM [Concomitant]
     Active Substance: DICLOFENAC SODIUM
     Dates: start: 20140929, end: 20140929
  105. DICLOFENAC SODIUM [Concomitant]
     Active Substance: DICLOFENAC SODIUM
     Dates: start: 20170322, end: 20170401
  106. OMEPRAZOLE [Concomitant]
     Active Substance: OMEPRAZOLE
     Indication: Gastrointestinal disorder prophylaxis
     Dates: start: 20160914, end: 20160918
  107. OMEPRAZOLE [Concomitant]
     Active Substance: OMEPRAZOLE
     Indication: COVID-19 pneumonia
     Dates: start: 20170913, end: 20170917
  108. OMEPRAZOLE [Concomitant]
     Active Substance: OMEPRAZOLE
     Dates: start: 20180124, end: 20180128
  109. OMEPRAZOLE [Concomitant]
     Active Substance: OMEPRAZOLE
     Dates: start: 20141125, end: 20141127
  110. OMEPRAZOLE [Concomitant]
     Active Substance: OMEPRAZOLE
     Dates: start: 20220401, end: 20220620
  111. NIMESULIDE [Concomitant]
     Active Substance: NIMESULIDE
     Indication: Back pain
     Dates: start: 20140913, end: 20140916
  112. LYRICA [Concomitant]
     Active Substance: PREGABALIN
     Indication: Back pain
     Dates: start: 20151207, end: 20170322
  113. LYRICA [Concomitant]
     Active Substance: PREGABALIN
     Dates: start: 20170918, end: 20190629
  114. LYRICA [Concomitant]
     Active Substance: PREGABALIN
     Dates: start: 20190629
  115. LYRICA [Concomitant]
     Active Substance: PREGABALIN
     Dates: start: 20170322, end: 20170917
  116. TRAMADOL [Concomitant]
     Active Substance: TRAMADOL
     Indication: Back pain
     Dates: start: 20170111, end: 20170403
  117. TRAMADOL [Concomitant]
     Active Substance: TRAMADOL
     Dates: start: 20170322, end: 20170401
  118. MYDOCALM [Concomitant]
     Indication: Back pain
     Dates: start: 20170322, end: 20170403
  119. ESCITALOPRAM OXALATE [Concomitant]
     Active Substance: ESCITALOPRAM OXALATE
     Indication: Back pain
     Dates: start: 20170403, end: 20170417
  120. ESCITALOPRAM OXALATE [Concomitant]
     Active Substance: ESCITALOPRAM OXALATE
     Dates: start: 20170417
  121. ZALDIAR [Concomitant]
     Active Substance: ACETAMINOPHEN\TRAMADOL HYDROCHLORIDE
     Indication: Back pain
     Dates: start: 20170403, end: 20180528
  122. SOLU-MEDROL [Concomitant]
     Active Substance: METHYLPREDNISOLONE SODIUM SUCCINATE
     Dates: start: 20130423, end: 20130427
  123. SOLU-MEDROL [Concomitant]
     Active Substance: METHYLPREDNISOLONE SODIUM SUCCINATE
     Dates: start: 20120717, end: 20120723
  124. SOLU-MEDROL [Concomitant]
     Active Substance: METHYLPREDNISOLONE SODIUM SUCCINATE
     Dates: start: 20140127, end: 20140131
  125. SOLU-MEDROL [Concomitant]
     Active Substance: METHYLPREDNISOLONE SODIUM SUCCINATE
     Dates: start: 20160914, end: 20160918
  126. SOLU-MEDROL [Concomitant]
     Active Substance: METHYLPREDNISOLONE SODIUM SUCCINATE
     Dates: start: 20170913, end: 20170917
  127. SOLU-MEDROL [Concomitant]
     Active Substance: METHYLPREDNISOLONE SODIUM SUCCINATE
     Dates: start: 20180124, end: 20180128
  128. SOLU-MEDROL [Concomitant]
     Active Substance: METHYLPREDNISOLONE SODIUM SUCCINATE
     Dates: start: 20190625, end: 20190629
  129. SOLU-MEDROL [Concomitant]
     Active Substance: METHYLPREDNISOLONE SODIUM SUCCINATE
     Dates: start: 20200702, end: 20200706
  130. SOLU-MEDROL [Concomitant]
     Active Substance: METHYLPREDNISOLONE SODIUM SUCCINATE
     Dates: start: 20180831, end: 20180904
  131. SOLU-MEDROL [Concomitant]
     Active Substance: METHYLPREDNISOLONE SODIUM SUCCINATE
     Dates: start: 20110204, end: 20110208
  132. SOLU-MEDROL [Concomitant]
     Active Substance: METHYLPREDNISOLONE SODIUM SUCCINATE
     Dates: start: 20110613, end: 20110617
  133. SOLU-MEDROL [Concomitant]
     Active Substance: METHYLPREDNISOLONE SODIUM SUCCINATE
     Dates: start: 20111003, end: 20111007
  134. POTASSIUM CHLORIDE [Concomitant]
     Active Substance: POTASSIUM CHLORIDE
     Dates: start: 20190625, end: 20190629
  135. POTASSIUM CHLORIDE [Concomitant]
     Active Substance: POTASSIUM CHLORIDE
     Dates: start: 20140127, end: 20140131
  136. POTASSIUM CHLORIDE [Concomitant]
     Active Substance: POTASSIUM CHLORIDE
     Dates: start: 20200702, end: 20200706
  137. POTASSIUM CHLORIDE [Concomitant]
     Active Substance: POTASSIUM CHLORIDE
     Dates: start: 20170327, end: 20170402
  138. POTASSIUM CHLORIDE [Concomitant]
     Active Substance: POTASSIUM CHLORIDE
     Dates: start: 20170913, end: 20170917
  139. POTASSIUM CHLORIDE [Concomitant]
     Active Substance: POTASSIUM CHLORIDE
     Dates: start: 20180831, end: 20180904
  140. CYANOCOBALAMIN [Concomitant]
     Active Substance: CYANOCOBALAMIN
     Dates: start: 20170322, end: 20170403
  141. ELMETACIN [Concomitant]
     Dates: start: 20121212, end: 20180528
  142. FAMOTIDINE [Concomitant]
     Active Substance: FAMOTIDINE
     Dates: start: 20200702, end: 20200706
  143. CELASKON [Concomitant]
     Indication: Viral infection
     Dates: start: 20160222, end: 20160226
  144. AMBROXOL HYDROCHLORIDE [Concomitant]
     Active Substance: AMBROXOL HYDROCHLORIDE
     Indication: COVID-19 pneumonia
     Dates: start: 20220401, end: 20220620
  145. ASPIRIN [Concomitant]
     Active Substance: ASPIRIN
     Indication: COVID-19 pneumonia
     Dates: start: 20220521, end: 20220620

REACTIONS (2)
  - Urinary tract infection [Recovered/Resolved]
  - Cystitis [Recovered/Resolved]

NARRATIVE: CASE EVENT DATE: 20130721
